FAERS Safety Report 17413963 (Version 1)
Quarter: 2020Q1

REPORT INFORMATION
  Report Type: Spontaneous
  Country: US (occurrence: US)
  Receive Date: 20200213
  Receipt Date: 20200213
  Transmission Date: 20200409
  Serious: Yes (Other)
  Sender: FDA-Public Use
  Company Number: US-ENDO PHARMACEUTICALS INC-2020-001523

PATIENT
  Age: 35 Year
  Sex: Male

DRUGS (2)
  1. XIAFLEX [Suspect]
     Active Substance: COLLAGENASE CLOSTRIDIUM HISTOLYTICUM
     Indication: PEYRONIE^S DISEASE
     Dosage: 0.58 MG, UNKNOWN
     Route: 065
     Dates: start: 20200131
  2. XIAFLEX [Suspect]
     Active Substance: COLLAGENASE CLOSTRIDIUM HISTOLYTICUM
     Dosage: 0.58 MG, UNKNOWN
     Route: 065

REACTIONS (3)
  - Corpora cavernosa surgery [Unknown]
  - Procedural pain [Unknown]
  - Fracture of penis [Unknown]

NARRATIVE: CASE EVENT DATE: 20200131
